FAERS Safety Report 4752674-3 (Version None)
Quarter: 2005Q3

REPORT INFORMATION
  Report Type: 
  Country: None (occurrence: None)
  Receive Date: 20050824
  Receipt Date: 20050103
  Transmission Date: 20060218
  Serious: Yes (Hospitalization)
  Sender: FDA-Public Use
  Company Number: 2004099560

PATIENT
  Age: 74 Year
  Sex: Female
  Weight: 50.8029 kg

DRUGS (5)
  1. DETROL LA [Suspect]
     Indication: HYPERTONIC BLADDER
     Dosage: SEE IMAGE
     Route: 048
     Dates: start: 20030101
  2. DETROL LA [Suspect]
     Indication: HYPERTONIC BLADDER
     Dosage: SEE IMAGE
     Route: 048
     Dates: start: 20030301
  3. IMIPRAMINE [Suspect]
     Indication: ILL-DEFINED DISORDER
     Dosage: UNKNOWN
     Route: 065
  4. VALIUM [Concomitant]
  5. IMODIUM [Concomitant]

REACTIONS (7)
  - BLADDER DISORDER [None]
  - CONDITION AGGRAVATED [None]
  - DRUG INEFFECTIVE [None]
  - HIP FRACTURE [None]
  - JOINT INJURY [None]
  - OSTEOARTHRITIS [None]
  - SWELLING FACE [None]
